FAERS Safety Report 9378576 (Version 4)
Quarter: 2014Q2

REPORT INFORMATION
  Report Type: Report from Study
  Country: US (occurrence: US)
  Receive Date: 20130702
  Receipt Date: 20140408
  Transmission Date: 20141212
  Serious: Yes (Hospitalization, Disabling, Other)
  Sender: FDA-Public Use
  Company Number: US-ROCHE-1242139

PATIENT
  Sex: Female

DRUGS (11)
  1. RANIBIZUMAB [Suspect]
     Indication: PRODUCT USED FOR UNKNOWN INDICATION
     Route: 050
     Dates: start: 20091216, end: 20120327
  2. BENDROFLUMETHIAZIDE [Concomitant]
     Route: 065
     Dates: start: 20091101, end: 20120329
  3. ASPIRIN [Concomitant]
     Route: 065
     Dates: start: 20120330, end: 20120413
  4. ASPIRIN [Concomitant]
     Route: 065
  5. FUROSEMIDE [Concomitant]
     Route: 065
     Dates: start: 20120330
  6. RAMIPRIL [Concomitant]
     Route: 065
     Dates: start: 20120330
  7. SIMVASTATIN [Concomitant]
     Route: 065
     Dates: start: 20120330
  8. OMEPRAZOLE [Concomitant]
  9. CO-AMOXICLAV [Concomitant]
  10. CLOPIDOGREL [Concomitant]
  11. PROPRANOLOL [Concomitant]
     Route: 065
     Dates: start: 20090111, end: 20120329

REACTIONS (7)
  - Cerebrovascular accident [Recovered/Resolved]
  - Cerebral infarction [Recovered/Resolved]
  - Cerebral artery thrombosis [Recovered/Resolved]
  - Sinus congestion [Recovered/Resolved]
  - Syncope [Recovering/Resolving]
  - Nasal congestion [Recovered/Resolved]
  - Pain [Recovered/Resolved]
